FAERS Safety Report 6569665-2 (Version None)
Quarter: 2010Q1

REPORT INFORMATION
  Report Type: 
  Country: None (occurrence: None)
  Receive Date: 20100204
  Receipt Date: 20100121
  Transmission Date: 20100710
  Serious: Yes (Hospitalization, Disabling)
  Sender: FDA-Public Use
  Company Number: PHHY2010JP03381

PATIENT
  Sex: Female
  Weight: 78 kg

DRUGS (1)
  1. DIOVAN [Suspect]
     Dosage: 80 MG ONCE DAILY
     Route: 048
     Dates: start: 20070919, end: 20091013

REACTIONS (1)
  - CEREBRAL INFARCTION [None]
